FAERS Safety Report 6574184-3 (Version None)
Quarter: 2010Q1

REPORT INFORMATION
  Report Type: 
  Country: None (occurrence: None)
  Receive Date: 20100208
  Receipt Date: 20100107
  Transmission Date: 20100710
  Serious: No
  Sender: FDA-Public Use
  Company Number: US-BAYER-201011094NA

PATIENT
  Age: 65 Year
  Sex: Male
  Weight: 73 kg

DRUGS (3)
  1. ULTRAVIST 370 [Suspect]
     Indication: LUNG NEOPLASM
     Dosage: TOTAL DAILY DOSE: 80 ML  UNIT DOSE: 500 ML
     Route: 042
     Dates: start: 20100107, end: 20100107
  2. THORAZINE [Concomitant]
  3. DILANTIN [Concomitant]

REACTIONS (1)
  - RASH PAPULAR [None]
